FAERS Safety Report 17071208 (Version 1)
Quarter: 2019Q4

REPORT INFORMATION
  Report Type: Spontaneous
  Country: FR (occurrence: FR)
  Receive Date: 20191125
  Receipt Date: 20191125
  Transmission Date: 20200122
  Serious: Yes (Life-Threatening)
  Sender: FDA-Public Use
  Company Number: FR-TEVA-2019-FR-1140156

PATIENT
  Age: 71 Year
  Sex: Male
  Weight: 50 kg

DRUGS (12)
  1. IMETH 20 MG/0,8 ML, SOLUTION INJECTABLE EN SERINGUE PR?REMPLIE [Suspect]
     Active Substance: METHOTREXATE SODIUM
     Indication: RHEUMATOID ARTHRITIS
     Dosage: 1 DF, 20 MG/0.78 ML
     Route: 058
     Dates: start: 201803, end: 20191014
  2. KARDEGIC [Suspect]
     Active Substance: ASPIRIN DL-LYSINE
     Indication: MYOCARDIAL INFARCTION
     Dosage: 1 DF
     Route: 048
     Dates: start: 201205, end: 20191016
  3. BISOPROLOL (HEMIFUMARATE DE) [Concomitant]
     Active Substance: BISOPROLOL FUMARATE
  4. LEFLUNOMIDE. [Suspect]
     Active Substance: LEFLUNOMIDE
     Indication: RHEUMATOID ARTHRITIS
     Dosage: 20 MG
     Route: 048
     Dates: start: 20190930, end: 20191014
  5. NOVATREX (METHOTREXATE) [Suspect]
     Active Substance: METHOTREXATE SODIUM
     Indication: RHEUMATOID ARTHRITIS
     Dosage: 4 DF
     Route: 048
     Dates: start: 20190925, end: 20191014
  6. EFIENT 10 MG, COMPRIME PELLICULE [Suspect]
     Active Substance: PRASUGREL HYDROCHLORIDE
     Indication: MYOCARDIAL INFARCTION
     Dosage: 1 DF
     Route: 048
     Dates: start: 201205, end: 20191014
  7. SPECIAFOLDINE [Concomitant]
     Active Substance: FOLIC ACID
  8. LIPTRUZET [Concomitant]
     Active Substance: ATORVASTATIN CALCIUM\EZETIMIBE
  9. LERCANIDIPINE (CHLORHYDRATE DE) [Concomitant]
     Active Substance: LERCANIDIPINE HYDROCHLORIDE
  10. RAMIPRIL. [Concomitant]
     Active Substance: RAMIPRIL
  11. VENTOLINE [Concomitant]
     Active Substance: ALBUTEROL
  12. ULTIBRO BREEZHALER [Concomitant]
     Active Substance: GLYCOPYRRONIUM\INDACATEROL

REACTIONS (3)
  - Incorrect dose administered [Recovered/Resolved]
  - Pancytopenia [Recovered/Resolved]
  - Thrombocytopenic purpura [Recovered/Resolved]

NARRATIVE: CASE EVENT DATE: 20190925
